FAERS Safety Report 25417928 (Version 1)
Quarter: 2025Q2

REPORT INFORMATION
  Report Type: Spontaneous
  Country: US (occurrence: None)
  Receive Date: 20250609
  Receipt Date: 20250609
  Transmission Date: 20250716
  Serious: Yes (Death)
  Sender: FDA-CTU
  Company Number: None

PATIENT
  Age: 82 Year
  Sex: Female

DRUGS (1)
  1. TADALAFIL [Suspect]
     Active Substance: TADALAFIL
     Indication: Pulmonary arterial hypertension
     Dosage: FREQUENCY : DAILY;?

REACTIONS (4)
  - Respiratory arrest [None]
  - Unresponsive to stimuli [None]
  - Cardiac arrest [None]
  - Ventricular fibrillation [None]

NARRATIVE: CASE EVENT DATE: 20250607
